FAERS Safety Report 16508371 (Version 1)
Quarter: 2019Q3

REPORT INFORMATION
  Report Type: Spontaneous
  Country: CA (occurrence: CA)
  Receive Date: 20190702
  Receipt Date: 20190702
  Transmission Date: 20191004
  Serious: Yes (Other)
  Sender: FDA-Public Use
  Company Number: CA-SAMSUNG BIOEPIS-SB-2019-16314

PATIENT
  Age: 30 Year
  Sex: Female
  Weight: 45 kg

DRUGS (2)
  1. PANTOPRAZOLE SODIUM. [Concomitant]
     Active Substance: PANTOPRAZOLE SODIUM
     Indication: PRODUCT USED FOR UNKNOWN INDICATION
     Dosage: UNKNOWN
     Route: 065
  2. INFLIXIMAB [Suspect]
     Active Substance: INFLIXIMAB
     Indication: CROHN^S DISEASE
     Route: 042

REACTIONS (6)
  - Haematochezia [Unknown]
  - Abdominal pain [Unknown]
  - Seasonal allergy [Unknown]
  - Fatigue [Unknown]
  - Product prescribing issue [Unknown]
  - Condition aggravated [Unknown]
